FAERS Safety Report 17675028 (Version 1)
Quarter: 2020Q2

REPORT INFORMATION
  Report Type: Spontaneous
  Country: US (occurrence: US)
  Receive Date: 20200416
  Receipt Date: 20200416
  Transmission Date: 20200714
  Serious: No
  Sender: FDA-Public Use
  Company Number: US-TEVA-2020-US-1224013

PATIENT
  Sex: Female

DRUGS (1)
  1. AUSTEDO [Suspect]
     Active Substance: DEUTETRABENAZINE
     Indication: BASAL GANGLION DEGENERATION
     Dosage: 24 MILLIGRAM DAILY; 12 MILIGRAMS TWICE DAILY; AUSTEDO FIRST SHIPPED: 03-DEC-2019
     Route: 048

REACTIONS (2)
  - Product use in unapproved indication [Unknown]
  - Anxiety [Unknown]
